FAERS Safety Report 18192628 (Version 3)
Quarter: 2020Q4

REPORT INFORMATION
  Report Type: Spontaneous
  Country: US (occurrence: US)
  Receive Date: 20200825
  Receipt Date: 20201014
  Transmission Date: 20210113
  Serious: No
  Sender: FDA-Public Use
  Company Number: US-PFIZER INC-2020323276

PATIENT
  Age: 65 Year
  Sex: Female
  Weight: 96.16 kg

DRUGS (1)
  1. NIVESTYM [Suspect]
     Active Substance: FILGRASTIM-AAFI
     Indication: AUTOIMMUNE DISORDER
     Dosage: 480MCG/0.8ML ONE DAILY BY INJECTION
     Dates: start: 2019, end: 202006

REACTIONS (8)
  - Fatigue [Unknown]
  - Hypersomnia [Unknown]
  - Off label use [Unknown]
  - Gait disturbance [Unknown]
  - Feeling abnormal [Unknown]
  - White blood cell count decreased [Unknown]
  - Asthenia [Unknown]
  - Product use in unapproved indication [Unknown]

NARRATIVE: CASE EVENT DATE: 2019
